FAERS Safety Report 22644233 (Version 1)
Quarter: 2023Q2

REPORT INFORMATION
  Report Type: Spontaneous
  Country: ES (occurrence: ES)
  Receive Date: 20230627
  Receipt Date: 20230627
  Transmission Date: 20230721
  Serious: Yes (Hospitalization)
  Sender: FDA-Public Use
  Company Number: None

PATIENT
  Age: 45 Year
  Sex: Female

DRUGS (2)
  1. RINVOQ [Interacting]
     Active Substance: UPADACITINIB
     Indication: Rheumatoid arthritis
     Dosage: 15MG D?A, EXTENDED-RELEASE TABLETS, 28 TABLETS
     Route: 048
     Dates: start: 20210701, end: 20220301
  2. PREDNISONE [Interacting]
     Active Substance: PREDNISONE
     Indication: Rheumatoid arthritis
     Dosage: 30MG D?A, (886A)
     Route: 048
     Dates: start: 20211220

REACTIONS (2)
  - Interstitial lung disease [Recovered/Resolved]
  - Pneumocystis jirovecii pneumonia [Recovered/Resolved]

NARRATIVE: CASE EVENT DATE: 20220226
